FAERS Safety Report 20110995 (Version 1)
Quarter: 2021Q4

REPORT INFORMATION
  Report Type: Spontaneous
  Country: FR (occurrence: FR)
  Receive Date: 20211125
  Receipt Date: 20211125
  Transmission Date: 20220303
  Serious: Yes (Hospitalization, Other)
  Sender: FDA-Public Use
  Company Number: FR-SA-2015SA106263

PATIENT
  Sex: Female

DRUGS (14)
  1. VALPROIC ACID [Suspect]
     Active Substance: VALPROIC ACID
     Indication: Epilepsy
     Dosage: 4 DOSAGE FORM, ONCE A DAY
     Route: 065
  2. VALPROIC ACID [Suspect]
     Active Substance: VALPROIC ACID
     Dosage: 2 DOSAGE FORM, TWO TIMES A DAY (DEPAKINE 200: 2 MORNINGS, 2 EVENINGS)
     Route: 065
     Dates: start: 19901211
  3. VALPROIC ACID [Suspect]
     Active Substance: VALPROIC ACID
     Dosage: 800 MILLIGRAM, ONCE A DAY
     Route: 065
     Dates: start: 19910107
  4. VALPROIC ACID [Suspect]
     Active Substance: VALPROIC ACID
     Dosage: 400 MG
     Route: 048
     Dates: start: 19930303
  5. VALPROIC ACID [Suspect]
     Active Substance: VALPROIC ACID
     Dosage: 1 GRAM, ONCE A DAY
     Route: 065
     Dates: start: 20000228
  6. VALPROIC ACID [Suspect]
     Active Substance: VALPROIC ACID
     Dosage: 3 DOSAGE FORM, ONCE A DAY (1-1-1)
     Route: 065
     Dates: start: 20060712, end: 20070104
  7. VALPROATE SODIUM [Suspect]
     Active Substance: VALPROATE SODIUM
     Indication: Product used for unknown indication
     Dosage: 1 DOSAGE FORM, TWO TIMES A DAY
     Route: 065
  8. VALPROATE SODIUM [Suspect]
     Active Substance: VALPROATE SODIUM
     Dosage: 3 DOSAGE FORM, ONCE A DAY
     Route: 065
  9. VALPROATE SODIUM [Suspect]
     Active Substance: VALPROATE SODIUM
     Dosage: 1 GRAM, ONCE A DAY
     Route: 065
     Dates: start: 19930303
  10. VALPROATE SODIUM [Suspect]
     Active Substance: VALPROATE SODIUM
     Dosage: 2 DOSAGE FORM, ONCE A DAY (EVENING)
     Route: 065
     Dates: start: 19990323
  11. VALPROATE SODIUM [Suspect]
     Active Substance: VALPROATE SODIUM
     Dosage: 2 DOSAGE FORM, TWO TIMES A DAY (2-0-2)
     Route: 065
     Dates: start: 20000826
  12. MAGNESIUM LACTATE\PYRIDOXINE HYDROCHLORIDE [Concomitant]
     Active Substance: MAGNESIUM LACTATE\PYRIDOXINE HYDROCHLORIDE
     Indication: Product used for unknown indication
     Dosage: 6 DOSAGE FORM, ONCE A DAY
     Route: 065
  13. FOLIC ACID [Concomitant]
     Active Substance: FOLIC ACID
     Indication: Product used for unknown indication
     Dosage: 1 DOSAGE FORM, ONCE A DAY
     Route: 065
  14. FOLIC ACID [Concomitant]
     Active Substance: FOLIC ACID
     Dosage: 5 MILLIGRAM, ONCE A DAY
     Route: 065

REACTIONS (5)
  - Threatened labour [Recovered/Resolved]
  - Drug ineffective [Recovered/Resolved]
  - Epilepsy [Recovered/Resolved]
  - Maternal exposure during pregnancy [Unknown]
  - Maternal exposure during breast feeding [Unknown]

NARRATIVE: CASE EVENT DATE: 19930101
